FAERS Safety Report 6310173-1 (Version None)
Quarter: 2009Q3

REPORT INFORMATION
  Report Type: 
  Country: None (occurrence: None)
  Receive Date: 20090814
  Receipt Date: 20090803
  Transmission Date: 20100115
  Serious: Yes (Death, Hospitalization)
  Sender: FDA-Public Use
  Company Number: JP-JNJFOC-20090709494

PATIENT
  Sex: Female
  Weight: 40 kg

DRUGS (17)
  1. REMICADE [Suspect]
     Route: 042
  2. REMICADE [Suspect]
     Indication: RHEUMATOID ARTHRITIS
     Route: 042
  3. RHEUMATREX [Suspect]
     Indication: RHEUMATOID ARTHRITIS
     Route: 048
  4. ENBREL [Suspect]
     Indication: RHEUMATOID ARTHRITIS
     Route: 058
  5. DEPAS [Concomitant]
     Indication: INSOMNIA
     Route: 048
  6. GASTER [Concomitant]
     Indication: GASTRITIS
     Route: 048
  7. FOLIC ACID [Concomitant]
     Indication: FOLATE DEFICIENCY
     Route: 048
  8. RIMATIL [Concomitant]
     Indication: RHEUMATOID ARTHRITIS
     Route: 048
  9. CALCIUM LACTATE [Concomitant]
     Route: 048
  10. CALCIUM LACTATE [Concomitant]
     Indication: OSTEOPOROSIS
     Route: 048
  11. ALFAROL [Concomitant]
     Indication: OSTEOPOROSIS
     Dosage: 0.5 RG, 0.2 RG
     Route: 048
  12. ULGUT [Concomitant]
     Route: 048
  13. ULGUT [Concomitant]
     Indication: CEREBRAL INFARCTION
     Route: 048
  14. SERMION [Concomitant]
     Route: 048
  15. SERMION [Concomitant]
     Indication: CEREBRAL INFARCTION
     Route: 048
  16. ASPIRIN [Concomitant]
     Indication: CEREBRAL INFARCTION
     Route: 048
  17. NORVASC [Concomitant]
     Indication: HYPERTENSION

REACTIONS (5)
  - EPSTEIN-BARR VIRUS INFECTION [None]
  - HISTIOCYTOSIS HAEMATOPHAGIC [None]
  - HODGKIN'S DISEASE [None]
  - PANCYTOPENIA [None]
  - PYREXIA [None]
